FAERS Safety Report 11072470 (Version 1)
Quarter: 2015Q2

REPORT INFORMATION
  Report Type: Spontaneous
  Country: CA (occurrence: CA)
  Receive Date: 20150428
  Receipt Date: 20150428
  Transmission Date: 20150821
  Serious: Yes (Other)
  Sender: FDA-Public Use
  Company Number: CA-MYLANLABS-2015M1014275

PATIENT

DRUGS (3)
  1. PHENYTOIN. [Suspect]
     Active Substance: PHENYTOIN
     Dosage: FOLLOWED BY 400 MG ON FOLLOWING DAY AND THEN
     Route: 042
  2. PHENYTOIN. [Suspect]
     Active Substance: PHENYTOIN
     Indication: GENERALISED TONIC-CLONIC SEIZURE
     Dosage: 800 MG FOLLOWED BY
     Route: 042
  3. PHENYTOIN. [Suspect]
     Active Substance: PHENYTOIN
     Dosage: AND THEN STARTED ON 100 MG 3 TIMES DAILY FOR 9 DAYS
     Route: 042

REACTIONS (6)
  - Unresponsive to stimuli [Recovering/Resolving]
  - Dysphagia [Recovering/Resolving]
  - Oedema [Not Recovered/Not Resolved]
  - Blood pressure inadequately controlled [Recovering/Resolving]
  - Toxicity to various agents [Recovering/Resolving]
  - Hypoalbuminaemia [Recovering/Resolving]
